FAERS Safety Report 16268373 (Version 1)
Quarter: 2019Q2

REPORT INFORMATION
  Report Type: Spontaneous
  Country: GB (occurrence: GB)
  Receive Date: 20190503
  Receipt Date: 20190503
  Transmission Date: 20190711
  Serious: Yes (Disabling, Other)
  Sender: FDA-Public Use
  Company Number: GB-AUROBINDO-AUR-APL-2019-005471

PATIENT

DRUGS (5)
  1. PRAVASTATIN TABLET [Suspect]
     Active Substance: PRAVASTATIN
     Indication: BLOOD TRIGLYCERIDES INCREASED
     Dosage: 20 MILLIGRAM, ONCE A DAY
     Route: 048
     Dates: start: 20181207, end: 20190103
  2. PRAVASTATIN TABLET [Suspect]
     Active Substance: PRAVASTATIN
     Dosage: 40 UNK,1X/DAY,ONCE A DAY
     Route: 048
     Dates: start: 20180919, end: 20181206
  3. THYROXIN [Concomitant]
     Active Substance: LEVOTHYROXINE
     Indication: HYPOTHYROIDISM
     Dosage: UNK
     Route: 065
  4. LORLATINIB [Suspect]
     Active Substance: LORLATINIB
     Indication: PRODUCT USED FOR UNKNOWN INDICATION
     Dosage: 100 MILLIGRAM, ONCE A DAY
     Route: 048
     Dates: start: 20180823, end: 201901
  5. LORLATINIB [Suspect]
     Active Substance: LORLATINIB
     Dosage: 75 MILLIGRAM
     Route: 065
     Dates: start: 201901

REACTIONS (5)
  - Pain in extremity [Recovered/Resolved]
  - Hypercholesterolaemia [Recovered/Resolved]
  - Musculoskeletal pain [Recovered/Resolved]
  - Paraesthesia [Recovered/Resolved]
  - Neck pain [Recovered/Resolved]

NARRATIVE: CASE EVENT DATE: 201810
